APPROVED DRUG PRODUCT: AZULFIDINE EN-TABS
Active Ingredient: SULFASALAZINE
Strength: 500MG
Dosage Form/Route: TABLET, DELAYED RELEASE;ORAL
Application: N007073 | Product #002 | TE Code: AB
Applicant: PFIZER INC
Approved: Apr 6, 1983 | RLD: Yes | RS: Yes | Type: RX